FAERS Safety Report 25619829 (Version 2)
Quarter: 2025Q3

REPORT INFORMATION
  Report Type: Spontaneous
  Country: US (occurrence: US)
  Receive Date: 20250730
  Receipt Date: 20250927
  Transmission Date: 20251020
  Serious: No
  Sender: SANOFI AVENTIS
  Company Number: US-SA-2025SA220178

PATIENT
  Age: 83 Year
  Sex: Male

DRUGS (1)
  1. DUPIXENT [Suspect]
     Active Substance: DUPILUMAB
     Indication: Dermatitis atopic
     Dosage: 300 MG, QOW
     Dates: start: 202502

REACTIONS (2)
  - Urinary tract infection [Unknown]
  - Eye infection [Unknown]

NARRATIVE: CASE EVENT DATE: 20250101
